FAERS Safety Report 17349873 (Version 3)
Quarter: 2020Q1

REPORT INFORMATION
  Report Type: Spontaneous
  Country: IT (occurrence: IT)
  Receive Date: 20200130
  Receipt Date: 20200316
  Transmission Date: 20200409
  Serious: Yes (Death, Life-Threatening, Hospitalization, Other)
  Sender: FDA-Public Use
  Company Number: IT-AUROBINDO-AUR-APL-2020-004039

PATIENT
  Age: 40 Year
  Sex: Male

DRUGS (34)
  1. VALPROIC ACID. [Interacting]
     Active Substance: VALPROIC ACID
     Dosage: 1500 MILLIGRAM, DAILY
     Route: 048
  2. CHLORPHENAMINE [Suspect]
     Active Substance: CHLORPHENIRAMINE MALEATE
     Indication: PSYCHOMOTOR HYPERACTIVITY
     Dosage: 10 MILLIGRAM,DAY 1
     Route: 042
  3. CHLORPROMAZINE. [Suspect]
     Active Substance: CHLORPROMAZINE
     Indication: BIPOLAR DISORDER
     Dosage: 50 MILLIGRAM (DAY 2)
     Route: 030
  4. VALPROIC ACID. [Interacting]
     Active Substance: VALPROIC ACID
     Dosage: 3 DOSAGE FORM, ONCE A DAY (DAY 3, 4 AND 5)
     Route: 048
  5. PROMAZINE [Interacting]
     Active Substance: PROMAZINE
     Indication: MANIA
     Dosage: UNK,DOSED WITHIN RECOMMENDED RANGE
     Route: 065
  6. CHLORPHENAMINE [Suspect]
     Active Substance: CHLORPHENIRAMINE MALEATE
     Indication: BIPOLAR DISORDER
  7. CHLORPROMAZINE. [Suspect]
     Active Substance: CHLORPROMAZINE
     Indication: AGITATION
     Dosage: 50 MILLIGRAM (DAY 1)
     Route: 042
  8. MIDAZOLAM HYDROCHLORIDE. [Suspect]
     Active Substance: MIDAZOLAM HYDROCHLORIDE
     Indication: BIPOLAR DISORDER
     Dosage: (DAY 1)5 MILLIGRAM
     Route: 042
  9. DELORAZEPAM [Concomitant]
     Active Substance: DELORAZEPAM
     Indication: BIPOLAR DISORDER
     Dosage: 5 MILLIGRAM, DAY 2 AT NIGHT
     Route: 030
  10. CLOZAPINE TABLETS [Interacting]
     Active Substance: CLOZAPINE
     Dosage: 400 MILLIGRAM, ONCE A DAY
     Route: 065
  11. HALOPERIDOL. [Interacting]
     Active Substance: HALOPERIDOL
     Indication: AGITATION
     Dosage: 15 MILLIGRAM,DAY 1
     Route: 042
  12. PROMAZINE [Interacting]
     Active Substance: PROMAZINE
     Indication: PSYCHOMOTOR HYPERACTIVITY
     Dosage: 60 MILLIGRAM AT NIGHT
     Route: 065
  13. CLOTIAPINE [Suspect]
     Active Substance: CLOTHIAPINE
     Indication: INSOMNIA
     Dosage: 12 MILLIGRAM, DAILY
     Route: 030
  14. CLOTIAPINE [Suspect]
     Active Substance: CLOTHIAPINE
     Indication: BIPOLAR DISORDER
     Dosage: 40 MILLIGRAM, 3 TIMES A DAY,DAY 2
     Route: 030
  15. DELORAZEPAM [Concomitant]
     Active Substance: DELORAZEPAM
     Dosage: 5 MILLIGRAM,DAY 3 TO DAY 5
     Route: 048
  16. CLOZAPINE TABLETS [Interacting]
     Active Substance: CLOZAPINE
     Indication: MANIA
     Dosage: 100 MILLIGRAM, DAILY,DAY 2
     Route: 048
  17. VALPROIC ACID. [Interacting]
     Active Substance: VALPROIC ACID
     Indication: MANIA
     Dosage: UNK,DOSED WITHIN RECOMMENDED RANGE
     Route: 065
  18. HALOPERIDOL. [Interacting]
     Active Substance: HALOPERIDOL
     Indication: BIPOLAR DISORDER
     Dosage: 5 MILLIGRAM, DAY 4
     Route: 048
  19. HALOPERIDOL. [Interacting]
     Active Substance: HALOPERIDOL
     Dosage: 10 MILLIGRAM, ONCE A DAY,DAY 5
     Route: 048
  20. CLOTIAPINE [Suspect]
     Active Substance: CLOTHIAPINE
     Dosage: 40 MILLIGRAM, 3 TIMES A DAY,DAY 23
     Route: 030
  21. CLOZAPINE TABLETS [Interacting]
     Active Substance: CLOZAPINE
     Indication: BIPOLAR DISORDER
     Dosage: 400 MILLIGRAM, ONCE A DAY
     Route: 065
  22. VALPROIC ACID. [Interacting]
     Active Substance: VALPROIC ACID
     Indication: AGITATION
     Dosage: 500 MILLIGRAM
     Route: 048
  23. CLOTIAPINE [Suspect]
     Active Substance: CLOTHIAPINE
     Dosage: 120 MILLIGRAM, ONCE A DAY
     Route: 030
  24. VALPROIC ACID. [Interacting]
     Active Substance: VALPROIC ACID
     Dosage: 1 DOSAGE FORM, ONCE A DAY (DAY 1 AND 2)
     Route: 048
  25. HALOPERIDOL. [Interacting]
     Active Substance: HALOPERIDOL
     Indication: MANIA
     Dosage: UNK,DOSED WITHIN RECOMMENDED RANGE
     Route: 065
  26. PROMAZINE [Interacting]
     Active Substance: PROMAZINE
     Indication: BIPOLAR DISORDER
     Dosage: 60 MILLIGRAM,DAY 3 AND 4
     Route: 048
  27. PROMAZINE [Interacting]
     Active Substance: PROMAZINE
     Dosage: 120 MILLIGRAM, ONCE A DAY,DAY 5
     Route: 048
  28. FLUVOXAMINE [Suspect]
     Active Substance: FLUVOXAMINE
     Indication: PRODUCT USED FOR UNKNOWN INDICATION
     Dosage: 200 MILLIGRAM, DAILY
     Route: 048
  29. MIDAZOLAM HYDROCHLORIDE. [Suspect]
     Active Substance: MIDAZOLAM HYDROCHLORIDE
     Indication: PSYCHOMOTOR HYPERACTIVITY
     Dosage: 15 MILLIGRAM (DAY 1)
     Route: 042
  30. DELORAZEPAM [Concomitant]
     Active Substance: DELORAZEPAM
     Indication: AGITATION
     Dosage: 5 MILLIGRAM
     Route: 042
  31. CLOZAPINE TABLETS [Suspect]
     Active Substance: CLOZAPINE
     Indication: AGITATION
     Dosage: DOSE WITHIN RECOMMENDED RANGE
     Route: 065
  32. CLOZAPINE TABLETS [Interacting]
     Active Substance: CLOZAPINE
     Dosage: 300 MILLIGRAM
     Route: 065
  33. CLOTIAPINE [Suspect]
     Active Substance: CLOTHIAPINE
     Indication: AGITATION
     Dosage: 40 MILLIGRAM,AT NIGHT, DAY 1
     Route: 030
  34. MIDAZOLAM HYDROCHLORIDE. [Suspect]
     Active Substance: MIDAZOLAM HYDROCHLORIDE
     Dosage: 20 MILLIGRAM,DAY 1 AT 1.00 PM, 5 MG AT NIGHT
     Route: 042

REACTIONS (22)
  - Splenic fibrosis [Unknown]
  - Hepatic steatosis [Unknown]
  - Coronary artery stenosis [Fatal]
  - Cardiac valve sclerosis [Fatal]
  - Hepatic congestion [Unknown]
  - Syncope [Unknown]
  - Drug ineffective [Unknown]
  - Skin laceration [Unknown]
  - Head injury [Unknown]
  - Drug level increased [Fatal]
  - Arteriosclerosis coronary artery [Fatal]
  - Drug interaction [Fatal]
  - Extravasation blood [Unknown]
  - Cardiac hypertrophy [Fatal]
  - Pulmonary congestion [Unknown]
  - Cardiac arrest [Fatal]
  - Toxicity to various agents [Fatal]
  - Myocardial ischaemia [Fatal]
  - Sudden death [Fatal]
  - Brain oedema [Unknown]
  - Kidney congestion [Unknown]
  - Pulmonary oedema [Unknown]
